FAERS Safety Report 19161281 (Version 1)
Quarter: 2021Q2

REPORT INFORMATION
  Report Type: Spontaneous
  Country: DE (occurrence: DE)
  Receive Date: 20210421
  Receipt Date: 20210421
  Transmission Date: 20210717
  Serious: Yes (Other)
  Sender: FDA-Public Use
  Company Number: DE-ESPERIONTHERAPEUTICS-2021DEU00769

PATIENT
  Age: 61 Year
  Sex: Female

DRUGS (1)
  1. NUSTENDI [Suspect]
     Active Substance: BEMPEDOIC ACID\EZETIMIBE
     Indication: HYPERCHOLESTEROLAEMIA
     Dosage: 1 DF, QD
     Route: 065

REACTIONS (8)
  - Blood glucose increased [Unknown]
  - Apathy [Unknown]
  - Fatigue [Unknown]
  - Liver function test increased [Unknown]
  - Ocular hypertension [Unknown]
  - Palpitations [Unknown]
  - Muscular weakness [Unknown]
  - Dyspnoea [Unknown]

NARRATIVE: CASE EVENT DATE: 202103
